FAERS Safety Report 6044543-6 (Version None)
Quarter: 2009Q1

REPORT INFORMATION
  Report Type: 
  Country: None (occurrence: None)
  Receive Date: 20090120
  Receipt Date: 20080813
  Transmission Date: 20090719
  Serious: Yes (Other)
  Sender: FDA-Public Use
  Company Number: CA-SANOFI-SYNTHELABO-A01200809931

PATIENT
  Age: 74 Year
  Sex: Female

DRUGS (5)
  1. ACCUPRIL [Concomitant]
     Indication: DRUG USE FOR UNKNOWN INDICATION
     Route: 048
  2. NORVASC [Suspect]
     Indication: BLOOD PRESSURE INCREASED
     Route: 048
     Dates: start: 20080730, end: 20080801
  3. SYNTHROID [Concomitant]
     Indication: DRUG USE FOR UNKNOWN INDICATION
     Route: 048
  4. PLAVIX [Suspect]
     Indication: CEREBROVASCULAR ACCIDENT
     Route: 048
     Dates: start: 20040101
  5. PRAVACHOL [Concomitant]
     Indication: DRUG USE FOR UNKNOWN INDICATION
     Dosage: UNK
     Route: 048

REACTIONS (10)
  - BLOOD PRESSURE DECREASED [None]
  - CHEST PAIN [None]
  - DIABETES MELLITUS [None]
  - DIZZINESS [None]
  - HEADACHE [None]
  - SKIN BURNING SENSATION [None]
  - SUNBURN [None]
  - VASCULAR INJURY [None]
  - VISION BLURRED [None]
  - VISUAL ACUITY REDUCED [None]
